FAERS Safety Report 19121189 (Version 1)
Quarter: 2021Q2

REPORT INFORMATION
  Report Type: Other
  Country: CA (occurrence: CA)
  Receive Date: 20210412
  Receipt Date: 20210412
  Transmission Date: 20210717
  Serious: Yes (Life-Threatening, Hospitalization, Disabling, Other)
  Sender: FDA-Public Use
  Company Number: CA-APOTEX-2021AP008463

PATIENT
  Age: 43 Year
  Sex: Male
  Weight: 82 kg

DRUGS (1)
  1. LEFLUNOMIDE. [Suspect]
     Active Substance: LEFLUNOMIDE
     Indication: SERONEGATIVE ARTHRITIS
     Dosage: 20 MILLIGRAM, QD
     Route: 065

REACTIONS (3)
  - Erythroid maturation arrest [Not Recovered/Not Resolved]
  - Anaemia [Not Recovered/Not Resolved]
  - Biopsy bone marrow abnormal [Not Recovered/Not Resolved]
